FAERS Safety Report 25169134 (Version 1)
Quarter: 2025Q2

REPORT INFORMATION
  Report Type: Report from Study
  Country: US (occurrence: US)
  Receive Date: 20250407
  Receipt Date: 20250407
  Transmission Date: 20250716
  Serious: Yes (Life-Threatening, Hospitalization, Other)
  Sender: ALEXION PHARMACEUTICALS
  Company Number: US-AstraZeneca-CH-00841770A

PATIENT

DRUGS (1)
  1. DAPAGLIFLOZIN [Suspect]
     Active Substance: DAPAGLIFLOZIN
     Route: 065

REACTIONS (8)
  - Fall [Unknown]
  - Cervical vertebral fracture [Unknown]
  - Concussion [Unknown]
  - Craniocerebral injury [Unknown]
  - Accident [Unknown]
  - Back pain [Unknown]
  - Nerve injury [Unknown]
  - Blood glucose increased [Unknown]
